FAERS Safety Report 8927265 (Version 1)
Quarter: 2012Q4

REPORT INFORMATION
  Report Type: 
  Country: FR (occurrence: FR)
  Receive Date: 20121127
  Receipt Date: 20121127
  Transmission Date: 20130627
  Serious: Yes (Other)
  Sender: FDA-Public Use
  Company Number: FR-009507513-1211FRA008372

PATIENT
  Age: 60 Year
  Sex: Male

DRUGS (4)
  1. VICTRELIS [Suspect]
     Indication: HEPATITIS C
     Dosage: UNK
     Route: 048
  2. VIRAFERONPEG [Suspect]
     Indication: HEPATITIS C
     Dosage: UNK
     Route: 058
     Dates: end: 20121105
  3. VIRAFERONPEG [Suspect]
     Dosage: UNK
  4. REBETOL [Suspect]
     Indication: HEPATITIS C
     Route: 048

REACTIONS (1)
  - Thrombocytopenia [Not Recovered/Not Resolved]
